FAERS Safety Report 18415457 (Version 1)
Quarter: 2020Q4

REPORT INFORMATION
  Report Type: Report from Study
  Country: DO (occurrence: DO)
  Receive Date: 20201022
  Receipt Date: 20201022
  Transmission Date: 20210114
  Serious: Yes (Other)
  Sender: FDA-Public Use
  Company Number: NVSC2020DO235324

PATIENT
  Age: 61 Year
  Sex: Female

DRUGS (5)
  1. ELIQUIS [Concomitant]
     Active Substance: APIXABAN
     Indication: PRODUCT USED FOR UNKNOWN INDICATION
     Dosage: UNK, UNKNOWN
     Route: 065
  2. VYMADA [Suspect]
     Active Substance: SACUBITRIL\VALSARTAN
     Dosage: 200 MG, UNKNOWN (STARTED ONE YEAR AGO)
     Route: 065
  3. PROCORALAN [Concomitant]
     Active Substance: IVABRADINE
     Indication: PRODUCT USED FOR UNKNOWN INDICATION
     Dosage: UNK
     Route: 065
  4. VYMADA [Suspect]
     Active Substance: SACUBITRIL\VALSARTAN
     Dosage: 100 MG, UNKNOWN (STARTED 3 YEARS AGO) (STOPPED ONE YEAR AGO)
     Route: 065
  5. VYMADA [Suspect]
     Active Substance: SACUBITRIL\VALSARTAN
     Indication: PRODUCT USED FOR UNKNOWN INDICATION
     Dosage: 50 MG, UNKNOWN (STARTED LIKE 4 YEARS AGO) (STOPPED 3 YEARS AGO)
     Route: 065

REACTIONS (6)
  - Head discomfort [Unknown]
  - Poor peripheral circulation [Unknown]
  - Neoplasm [Unknown]
  - Cardiac disorder [Unknown]
  - Gait disturbance [Unknown]
  - Fatigue [Unknown]
